FAERS Safety Report 21639514 (Version 3)
Quarter: 2023Q1

REPORT INFORMATION
  Report Type: Spontaneous
  Country: US (occurrence: US)
  Receive Date: 20221124
  Receipt Date: 20230213
  Transmission Date: 20230417
  Serious: No
  Sender: FDA-Public Use
  Company Number: US-BRISTOL-MYERS SQUIBB COMPANY-2022-142823

PATIENT
  Age: 57 Year
  Sex: Male

DRUGS (1)
  1. REVLIMID [Suspect]
     Active Substance: LENALIDOMIDE
     Indication: Plasma cell myeloma
     Dosage: FREQ: DAILY 21 DAYS ON AND 7 DAYS OFF
     Route: 048
     Dates: start: 20220929

REACTIONS (11)
  - Oral pain [Unknown]
  - Taste disorder [Unknown]
  - Decreased appetite [Unknown]
  - Depressed mood [Unknown]
  - Peripheral swelling [Unknown]
  - Lip swelling [Unknown]
  - Lip disorder [Unknown]
  - Lip pain [Unknown]
  - Blister [Unknown]
  - Dysphagia [Unknown]
  - Oropharyngeal pain [Unknown]
